FAERS Safety Report 13322871 (Version 3)
Quarter: 2018Q1

REPORT INFORMATION
  Report Type: Spontaneous
  Country: IT (occurrence: IT)
  Receive Date: 20170309
  Receipt Date: 20180315
  Transmission Date: 20180508
  Serious: Yes (Hospitalization, Other)
  Sender: FDA-Public Use
  Company Number: IT-AUROBINDO-AUR-APL-2017-30768

PATIENT
  Age: 13 Year
  Sex: Male

DRUGS (15)
  1. IBUPROFEN. [Suspect]
     Active Substance: IBUPROFEN
     Indication: PYREXIA
     Dosage: UNK
     Route: 065
  2. IBUPROFEN. [Interacting]
     Active Substance: IBUPROFEN
     Dosage: ()
  3. LAMOTRIGINE. [Interacting]
     Active Substance: LAMOTRIGINE
     Dosage: ()
     Route: 065
  4. LAMOTRIGINE. [Interacting]
     Active Substance: LAMOTRIGINE
     Dosage: DRUG REDUCED ()
     Route: 065
  5. PARACETAMOL [Interacting]
     Active Substance: ACETAMINOPHEN
     Indication: PYREXIA
     Dosage: TOTAL DOSAGE OF 6 G/DAY, EQUAL TO 160 MG/KG/DAY, OR 4 G/DAY, EQUAL TO 100 MG/KG/DAY
     Route: 065
  6. PARACETAMOL [Interacting]
     Active Substance: ACETAMINOPHEN
     Dosage: TOTAL DOSAGE OF 6 G/DAY, EQUAL TO 160 MG/KG/DAY, OR 4 G/DAY, EQUAL TO 100 MG/KG/DAY ()
  7. LAMOTRIGINE. [Interacting]
     Active Substance: LAMOTRIGINE
     Dosage: DRUG REDUCED ()
     Route: 065
  8. TOPIRAMATE. [Interacting]
     Active Substance: TOPIRAMATE
     Indication: EPILEPSY
     Dosage: ()
     Route: 065
  9. LAMOTRIGINE. [Interacting]
     Active Substance: LAMOTRIGINE
     Indication: PARTIAL SEIZURES
     Dosage: ()
  10. PARACETAMOL [Interacting]
     Active Substance: ACETAMINOPHEN
     Dosage: TOTAL DOSAGE OF 6 G/DAY, EQUAL TO 160 MG/KG/DAY, OR 4 G/DAY, EQUAL TO 100 MG/KG/DAY (1)
     Route: 065
  11. VALPROIC ACID. [Interacting]
     Active Substance: VALPROIC ACID
     Indication: EPILEPSY
     Dosage: UNK
     Route: 065
  12. VALPROIC ACID. [Interacting]
     Active Substance: VALPROIC ACID
     Dosage: ()
  13. IBUPROFEN. [Interacting]
     Active Substance: IBUPROFEN
     Dosage: ()
  14. LAMOTRIGINE. [Interacting]
     Active Substance: LAMOTRIGINE
     Indication: EPILEPSY
     Dosage: UNK
     Route: 065
  15. LAMOTRIGINE. [Interacting]
     Active Substance: LAMOTRIGINE
     Dosage: ()
     Route: 065

REACTIONS (17)
  - Toxicity to various agents [Unknown]
  - Accidental overdose [Unknown]
  - Hypertransaminasaemia [Unknown]
  - Rash maculo-papular [Recovered/Resolved]
  - Prothrombin time abnormal [Unknown]
  - Intentional product misuse [Recovered/Resolved]
  - Angular cheilitis [Unknown]
  - Rash [Recovered/Resolved]
  - International normalised ratio increased [Recovered/Resolved]
  - Drug-induced liver injury [Recovered/Resolved]
  - Drug interaction [Unknown]
  - Overdose [Recovered/Resolved]
  - Pruritus generalised [Unknown]
  - Acute hepatic failure [Recovered/Resolved]
  - Alanine aminotransferase increased [Recovered/Resolved]
  - Lip oedema [Unknown]
  - Aspartate aminotransferase increased [Recovered/Resolved]
